FAERS Safety Report 16043933 (Version 1)
Quarter: 2019Q1

REPORT INFORMATION
  Report Type: Spontaneous
  Country: IT (occurrence: IT)
  Receive Date: 20190306
  Receipt Date: 20190306
  Transmission Date: 20190418
  Serious: Yes (Life-Threatening)
  Sender: FDA-Public Use
  Company Number: IT-PFIZER INC-2019095546

PATIENT
  Age: 57 Year
  Sex: Male

DRUGS (1)
  1. EPSOCLAR [Suspect]
     Active Substance: HEPARIN SODIUM
     Indication: SURGERY
     Dosage: 25000 IU, UNK
     Route: 042
     Dates: start: 20190207, end: 20190207

REACTIONS (1)
  - Heparin resistance [Recovered/Resolved]

NARRATIVE: CASE EVENT DATE: 20190207
